FAERS Safety Report 17125046 (Version 3)
Quarter: 2020Q1

REPORT INFORMATION
  Report Type: Spontaneous
  Country: JP (occurrence: JP)
  Receive Date: 20191206
  Receipt Date: 20200221
  Transmission Date: 20200409
  Serious: Yes (Death, Other)
  Sender: FDA-Public Use
  Company Number: JP-009507513-1912JPN000143J

PATIENT
  Age: 59 Year
  Sex: Male
  Weight: 58 kg

DRUGS (14)
  1. KYTRIL [Concomitant]
     Active Substance: GRANISETRON HYDROCHLORIDE
     Indication: ANTIEMETIC SUPPORTIVE CARE
     Dosage: 1 MILLIGRAM, QD
     Route: 041
     Dates: start: 20190917, end: 20190917
  2. INSULIN GLARGINE(GENETICAL RECOMBINATION) [Concomitant]
     Active Substance: INSULIN GLARGINE
     Indication: DIABETES MELLITUS MANAGEMENT
     Dosage: 3 U, QD
     Route: 058
     Dates: start: 20190830, end: 20190922
  3. OXYCONTIN [Concomitant]
     Active Substance: OXYCODONE HYDROCHLORIDE
     Indication: DYSPNOEA
     Dosage: 5 MILLIGRAM, TID
     Route: 048
     Dates: start: 20190909, end: 20190922
  4. KEYTRUDA [Suspect]
     Active Substance: PEMBROLIZUMAB
     Indication: NON-SMALL CELL LUNG CANCER
     Dosage: 200 MILLIGRAM, Q3W
     Route: 041
     Dates: start: 20190917, end: 20190917
  5. HUMALOG [Concomitant]
     Active Substance: INSULIN LISPRO
     Indication: DIABETES MELLITUS MANAGEMENT
     Dosage: 4U, QD
     Route: 058
     Dates: start: 20190830, end: 20190922
  6. OXINORM [Concomitant]
     Indication: DYSPNOEA
     Dosage: 5 MILLIGRAM, QD
     Route: 048
     Dates: start: 20190903, end: 20190922
  7. ORGADRONE [Concomitant]
     Active Substance: DEXAMETHASONE SODIUM PHOSPHATE
     Indication: ANTIEMETIC SUPPORTIVE CARE
     Dosage: 19 MILLIGRAM, QD
     Route: 041
     Dates: start: 20190917, end: 20190917
  8. GASTER [Concomitant]
     Active Substance: FAMOTIDINE
     Indication: PROPHYLAXIS AGAINST GASTROINTESTINAL ULCER
     Dosage: 20 MILLIGRAM, QD
     Route: 041
     Dates: start: 20190917, end: 20190917
  9. CARBOPLATIN. [Concomitant]
     Active Substance: CARBOPLATIN
     Indication: NON-SMALL CELL LUNG CANCER
     Dosage: 750 MILLIGRAM, ONCE
     Route: 041
     Dates: start: 20190917, end: 20190917
  10. SUREPOST [Concomitant]
     Active Substance: REPAGLINIDE
     Indication: DIABETES MELLITUS MANAGEMENT
     Dosage: 0.25 MILLIGRAM, BID
     Route: 048
     Dates: start: 20190910, end: 20190922
  11. PACLITAXEL. [Concomitant]
     Active Substance: PACLITAXEL
     Indication: NON-SMALL CELL LUNG CANCER
     Dosage: 335 MILLIGRAM, ONCE
     Route: 041
     Dates: start: 20190917, end: 20190917
  12. PARIET [Concomitant]
     Active Substance: RABEPRAZOLE SODIUM
     Indication: PROPHYLAXIS AGAINST GASTROINTESTINAL ULCER
     Dosage: 10 MILLIGRAM, QD
     Route: 048
     Dates: start: 20190917, end: 20190917
  13. PROEMEND [Concomitant]
     Active Substance: FOSAPREPITANT
     Indication: ANTIEMETIC SUPPORTIVE CARE
     Dosage: 150 MILLIGRAM, QD
     Route: 041
     Dates: start: 20190917, end: 20190917
  14. DIPHENHYDRAMINE HYDROCHLORIDE. [Concomitant]
     Active Substance: DIPHENHYDRAMINE HYDROCHLORIDE
     Indication: ALLERGY PROPHYLAXIS
     Dosage: 50 MILLIGRAM, QD
     Route: 048
     Dates: start: 20190917, end: 20190917

REACTIONS (7)
  - Fall [Unknown]
  - Haemoptysis [Fatal]
  - Depressed level of consciousness [Recovering/Resolving]
  - Respiratory tract haemorrhage [Unknown]
  - Hallucination, visual [Unknown]
  - Respiratory failure [Unknown]
  - Vascular rupture [Unknown]

NARRATIVE: CASE EVENT DATE: 201909
